FAERS Safety Report 6746866-1 (Version None)
Quarter: 2010Q2

REPORT INFORMATION
  Report Type: 
  Country: None (occurrence: None)
  Receive Date: 20100528
  Receipt Date: 20090922
  Transmission Date: 20101027
  Serious: No
  Sender: FDA-Public Use
  Company Number: US-ASTRAZENECA-2009SE31611

PATIENT
  Sex: Female

DRUGS (5)
  1. PRILOSEC OTC [Suspect]
     Dosage: 1 TABLET, 1 /DAY
     Route: 048
     Dates: start: 20090922
  2. ASACOL [Concomitant]
     Dosage: UNKNOWN
  3. DIESEN ATROP [Concomitant]
     Indication: COLITIS
     Dosage: UNKNOWN
  4. IRON [Concomitant]
     Dosage: UNKNOWN
  5. CITALOPRAM [Concomitant]
     Dosage: UNKNOWN

REACTIONS (3)
  - ABDOMINAL DISCOMFORT [None]
  - DRUG ADMINISTRATION ERROR [None]
  - VOMITING [None]
